FAERS Safety Report 24396679 (Version 2)
Quarter: 2024Q4

REPORT INFORMATION
  Report Type: Spontaneous
  Country: DE (occurrence: DE)
  Receive Date: 20241004
  Receipt Date: 20241217
  Transmission Date: 20250115
  Serious: Yes (Hospitalization, Other)
  Sender: AMGEN
  Company Number: DE-AMGEN-DEUSP2024192738

PATIENT
  Age: 17 Year
  Sex: Female

DRUGS (9)
  1. FILGRASTIM [Suspect]
     Active Substance: FILGRASTIM
     Indication: Infantile genetic agranulocytosis
     Dosage: 10 MICROGRAM/KILOGRAM, QD
     Route: 058
  2. FILGRASTIM [Suspect]
     Active Substance: FILGRASTIM
     Dosage: 50 MICROGRAM/KILOGRAM, QD
     Route: 058
  3. FILGRASTIM [Suspect]
     Active Substance: FILGRASTIM
     Dosage: 10 MICROGRAM/KILOGRAM, QD
     Route: 058
  4. LEUKINE [Suspect]
     Active Substance: SARGRAMOSTIM
     Indication: Drug ineffective
     Dosage: 5 MICROGRAM/KILOGRAM, QD (=165 MICROGRAM/M^2/D) FOR 5 DAYS
     Route: 058
  5. LEUKINE [Suspect]
     Active Substance: SARGRAMOSTIM
     Indication: Congenital infection
     Dosage: 10 MICROGRAM/KILOGRAM, QD (=330 MICROGRAM/M^2/D (330 PER MICROLITER) FOR 2 DAYS
     Route: 058
  6. LEUKINE [Suspect]
     Active Substance: SARGRAMOSTIM
     Indication: Pregnancy
  7. FLUDARABINE PHOSPHATE [Concomitant]
     Active Substance: FLUDARABINE PHOSPHATE
  8. BUSULFAN [Concomitant]
     Active Substance: BUSULFAN
  9. LAPINE T-LYMPHOCYTE IMMUNE GLOBULIN [Concomitant]
     Active Substance: LAPINE T-LYMPHOCYTE IMMUNE GLOBULIN

REACTIONS (17)
  - Urosepsis [Unknown]
  - Gingivitis [Unknown]
  - Acute graft versus host disease in intestine [Unknown]
  - Gangrene [Unknown]
  - Mastoiditis [Unknown]
  - Cholesteatoma [Unknown]
  - Pneumonia [Unknown]
  - Dyspnoea [Unknown]
  - Sepsis [Unknown]
  - Pyrexia [Unknown]
  - Exposure during pregnancy [Unknown]
  - Gene mutation [Unknown]
  - Ear infection [Unknown]
  - Febrile infection [Unknown]
  - Cytomegalovirus infection [Unknown]
  - Off label use [Unknown]
  - Therapeutic product effect incomplete [Unknown]
